FAERS Safety Report 6309871-5 (Version None)
Quarter: 2009Q3

REPORT INFORMATION
  Report Type: 
  Country: None (occurrence: None)
  Receive Date: 20090814
  Receipt Date: 20090807
  Transmission Date: 20100115
  Serious: Yes (Death, Hospitalization)
  Sender: FDA-Public Use
  Company Number: US-GILEAD-2009-0023059

PATIENT
  Sex: Female
  Weight: 47.67 kg

DRUGS (11)
  1. LETAIRIS [Suspect]
     Indication: PULMONARY ARTERIAL HYPERTENSION
     Route: 048
     Dates: start: 20080726
  2. REVATIO [Concomitant]
  3. COUMADIN [Concomitant]
  4. AZITHROMYCIN [Concomitant]
  5. LESCOL XL [Concomitant]
  6. SYNTHROID [Concomitant]
  7. PROAMATINE [Concomitant]
  8. PERCOCET [Concomitant]
  9. RENAGEL [Concomitant]
  10. PROTONIX [Concomitant]
  11. NEPHROCAPS [Concomitant]

REACTIONS (1)
  - SUBDURAL HAEMATOMA [None]
